FAERS Safety Report 7766223-9 (Version None)
Quarter: 2011Q3

REPORT INFORMATION
  Report Type: 
  Country: None (occurrence: None)
  Receive Date: 20110921
  Receipt Date: 20110919
  Transmission Date: 20111222
  Serious: No
  Sender: FDA-Public Use
  Company Number: US-BAYER-2011-088426

PATIENT
  Sex: Male

DRUGS (1)
  1. MAGNEVIST [Suspect]

REACTIONS (3)
  - INJECTION SITE DISCOMFORT [None]
  - HYPOAESTHESIA [None]
  - MUSCLE TWITCHING [None]
